FAERS Safety Report 6676651-0 (Version None)
Quarter: 2010Q2

REPORT INFORMATION
  Report Type: 
  Country: None (occurrence: None)
  Receive Date: 20100412
  Receipt Date: 20100408
  Transmission Date: 20101027
  Serious: Yes (Death, Hospitalization)
  Sender: FDA-Public Use
  Company Number: PHHY2010GB17955

PATIENT
  Sex: Male

DRUGS (5)
  1. CLOZARIL [Suspect]
     Indication: SCHIZOPHRENIA
     Dosage: UNK
     Dates: start: 20040518
  2. VALPROATE SODIUM [Concomitant]
  3. ARIPIPRAZOLE [Concomitant]
  4. SIMVASTATIN [Concomitant]
  5. ATENOLOL [Concomitant]

REACTIONS (5)
  - CONSTIPATION [None]
  - INTESTINAL ISCHAEMIA [None]
  - MALAISE [None]
  - PANCREATIC NECROSIS [None]
  - WEIGHT INCREASED [None]
